FAERS Safety Report 7013987-8 (Version None)
Quarter: 2010Q3

REPORT INFORMATION
  Report Type: 
  Country: None (occurrence: None)
  Receive Date: 20100926
  Receipt Date: 20100916
  Transmission Date: 20110219
  Serious: Yes (Hospitalization)
  Sender: FDA-Public Use
  Company Number: FR-BRISTOL-MYERS SQUIBB COMPANY-15300437

PATIENT

DRUGS (1)
  1. ERBITUX [Suspect]
     Route: 042

REACTIONS (2)
  - OEDEMA [None]
  - RESPIRATORY DISORDER [None]
